FAERS Safety Report 22186752 (Version 6)
Quarter: 2024Q4

REPORT INFORMATION
  Report Type: Spontaneous
  Country: US (occurrence: US)
  Receive Date: 20230407
  Receipt Date: 20241111
  Transmission Date: 20250114
  Serious: No
  Sender: VERTEX
  Company Number: US-VERTEX PHARMACEUTICALS-2023-004931

PATIENT
  Age: 22 Year
  Sex: Female

DRUGS (7)
  1. TRIKAFTA [Suspect]
     Active Substance: ELEXACAFTOR\IVACAFTOR\TEZACAFTOR
     Indication: Cystic fibrosis
     Dosage: FULL DOSE
     Route: 048
     Dates: start: 2020, end: 2023
  2. TRIKAFTA [Suspect]
     Active Substance: ELEXACAFTOR\IVACAFTOR\TEZACAFTOR
     Dosage: LOWERING DOSE
     Route: 048
     Dates: start: 2023
  3. TRIKAFTA [Suspect]
     Active Substance: ELEXACAFTOR\IVACAFTOR\TEZACAFTOR
     Dosage: SWITCHED MORNING AND EVENING DOSE
     Route: 048
  4. TRIKAFTA [Suspect]
     Active Substance: ELEXACAFTOR\IVACAFTOR\TEZACAFTOR
     Dosage: 1 ORANGE TAB PM
     Route: 048
  5. TRIKAFTA [Suspect]
     Active Substance: ELEXACAFTOR\IVACAFTOR\TEZACAFTOR
     Dosage: LOWERED DOSAGE
     Route: 048
  6. TRIKAFTA [Suspect]
     Active Substance: ELEXACAFTOR\IVACAFTOR\TEZACAFTOR
     Dosage: ALTERNATE DAILY BETWEEN ONE NORMAL ORANGE PILL AND THE CHILD DOSES OF THE ORANGE PILL
     Route: 048
  7. CREON [Concomitant]
     Active Substance: PANCRELIPASE AMYLASE\PANCRELIPASE LIPASE\PANCRELIPASE PROTEASE

REACTIONS (27)
  - Fallopian tube cyst [Unknown]
  - Attention deficit hyperactivity disorder [Recovering/Resolving]
  - Hair growth abnormal [Unknown]
  - Hormone level abnormal [Unknown]
  - Blood testosterone increased [Unknown]
  - Blood androstenedione increased [Unknown]
  - Mental disorder [Not Recovered/Not Resolved]
  - Brain fog [Recovered/Resolved]
  - Amnesia [Recovering/Resolving]
  - Depression [Recovered/Resolved]
  - Acne [Recovering/Resolving]
  - Derealisation [Unknown]
  - Aphasia [Not Recovered/Not Resolved]
  - Tremor [Unknown]
  - Dehydration [Not Recovered/Not Resolved]
  - Pain [Unknown]
  - Mental impairment [Not Recovered/Not Resolved]
  - Cyst rupture [Unknown]
  - Asthenia [Not Recovered/Not Resolved]
  - Fatigue [Not Recovered/Not Resolved]
  - Apathy [Not Recovered/Not Resolved]
  - Indifference [Not Recovered/Not Resolved]
  - Anxiety [Unknown]
  - Panic disorder [Unknown]
  - General physical health deterioration [Not Recovered/Not Resolved]
  - Disturbance in attention [Recovered/Resolved]
  - Confusional state [Recovering/Resolving]

NARRATIVE: CASE EVENT DATE: 20220101
